FAERS Safety Report 10350607 (Version 1)
Quarter: 2014Q3

REPORT INFORMATION
  Report Type: Spontaneous
  Country: US (occurrence: US)
  Receive Date: 20140730
  Receipt Date: 20140730
  Transmission Date: 20150326
  Serious: No
  Sender: FDA-Public Use
  Company Number: US-B.I. PHARMACEUTICALS,INC./RIDGEFIELD-2014-BI-33596BP

PATIENT
  Age: 67 Year
  Sex: Female

DRUGS (2)
  1. ATROVENT [Suspect]
     Active Substance: IPRATROPIUM BROMIDE
     Indication: EMPHYSEMA
     Dosage: 680 MCG
     Route: 055
     Dates: start: 201406
  2. ATROVENT [Suspect]
     Active Substance: IPRATROPIUM BROMIDE
     Dosage: 340 MCG
     Route: 055
     Dates: end: 201406

REACTIONS (2)
  - Overdose [Unknown]
  - Overdose [Unknown]

NARRATIVE: CASE EVENT DATE: 201406
